FAERS Safety Report 10967793 (Version 1)
Quarter: 2015Q1

REPORT INFORMATION
  Report Type: Spontaneous
  Country: US (occurrence: None)
  Receive Date: 20150226
  Receipt Date: 20150226
  Transmission Date: 20150721
  Serious: No
  Sender: FDA-Public Use
  Company Number: TPA2009A04219

PATIENT
  Age: 69 Year
  Sex: Male
  Weight: 95.71 kg

DRUGS (4)
  1. BENAZEPRIL [Concomitant]
     Active Substance: BENAZEPRIL\BENAZEPRIL HYDROCHLORIDE
  2. COLCHICINE. [Concomitant]
     Active Substance: COLCHICINE
  3. BENICAR [Concomitant]
     Active Substance: OLMESARTAN MEDOXOMIL
  4. ULORIC [Suspect]
     Active Substance: FEBUXOSTAT
     Indication: GOUT
     Route: 048
     Dates: start: 20090315, end: 20090505

REACTIONS (2)
  - Hemiplegia [None]
  - Cerebrovascular accident [None]

NARRATIVE: CASE EVENT DATE: 20091204
